FAERS Safety Report 9381660 (Version 1)
Quarter: 2013Q3

REPORT INFORMATION
  Report Type: Report from Study
  Country: US (occurrence: US)
  Receive Date: 20130703
  Receipt Date: 20130703
  Transmission Date: 20140515
  Serious: Yes (Death)
  Sender: FDA-Public Use
  Company Number: US-PFIZER INC-2013195613

PATIENT
  Sex: Male

DRUGS (5)
  1. FENTANYL [Suspect]
     Dosage: UNK
     Route: 048
  2. METOPROLOL TARTRATE [Suspect]
     Dosage: UNK
  3. AMLODIPINE BESILATE [Suspect]
     Dosage: UNK
  4. OXYCODONE/ ACETAMINOPHEN [Suspect]
     Dosage: UNK
  5. ETHANOL [Suspect]
     Dosage: UNK

REACTIONS (1)
  - Intentional drug misuse [Fatal]
